FAERS Safety Report 4384328-X (Version None)
Quarter: 2004Q2

REPORT INFORMATION
  Report Type: 
  Country: None (occurrence: None)
  Receive Date: 20040621
  Receipt Date: 20040608
  Transmission Date: 20050107
  Serious: Yes (Death, Other)
  Sender: FDA-Public Use
  Company Number: 2004038758

PATIENT
  Sex: Female

DRUGS (7)
  1. MAGNEX (CEFOPERAZONE, SULBACTAM) [Suspect]
     Indication: ILL-DEFINED DISORDER
     Dosage: 2 GRAM (2 GRAM, ONCE)  INTRAVENOUS
     Route: 042
     Dates: start: 20040514
  2. ALL OTHER NON-THERAPEUTIC PRODUCTS (ALL OTHER NON-THERAPEUTIC PRODUCTS [Suspect]
     Indication: ILL-DEFINED DISORDER
     Dates: start: 20040514
  3. HYDROCORTISONE SODIUM SUCCINATE [Concomitant]
  4. DOPAMINE HCL [Concomitant]
  5. METOCLOPRAMIDE [Concomitant]
  6. RANITIDINE [Concomitant]
  7. ALL OTHER THERAPEUTIC PRODUCTS [Concomitant]

REACTIONS (6)
  - BLOOD PRESSURE IMMEASURABLE [None]
  - EYE DISORDER [None]
  - LOOSE STOOLS [None]
  - LOSS OF CONSCIOUSNESS [None]
  - POISONING [None]
  - VOMITING [None]
